FAERS Safety Report 8012676-0 (Version None)
Quarter: 2011Q4

REPORT INFORMATION
  Report Type: 
  Country: None (occurrence: None)
  Receive Date: 20111229
  Receipt Date: 20111219
  Transmission Date: 20120403
  Serious: No
  Sender: FDA-Public Use
  Company Number: US-MYLANLABS-2011S1024828

PATIENT
  Age: 57 Year
  Sex: Female
  Weight: 65.32 kg

DRUGS (4)
  1. TRAZODONE HCL [Suspect]
     Indication: DEPRESSION
     Route: 048
     Dates: start: 20031001
  2. BUSPIRONE HCL [Concomitant]
     Indication: DEPRESSION
     Route: 048
  3. SODIUM FLUORIDE [Concomitant]
     Indication: DENTAL FLUORIDE THERAPY
     Dates: start: 20110701
  4. LEVOTHYROXINE SODIUM [Concomitant]
     Indication: THYROID DISORDER

REACTIONS (2)
  - DENTAL CARIES [None]
  - DRY MOUTH [None]
